FAERS Safety Report 10478071 (Version 1)
Quarter: 2014Q3

REPORT INFORMATION
  Report Type: Spontaneous
  Country: US (occurrence: None)
  Receive Date: 20140925
  Receipt Date: 20140925
  Transmission Date: 20150326
  Serious: No
  Sender: FDA-Public Use
  Company Number: None

PATIENT
  Age: 69 Year
  Sex: Male
  Weight: 83.92 kg

DRUGS (8)
  1. OMEPRAZOLE. [Concomitant]
     Active Substance: OMEPRAZOLE
  2. KLOR-CON (POTASSIUM BICARB9ONATE W/CITRATE) [Concomitant]
  3. KLORCON (KCL) [Concomitant]
  4. INDAPAMIDE. [Concomitant]
     Active Substance: INDAPAMIDE
  5. MULTIPLE VITAMINS [Concomitant]
     Active Substance: VITAMINS
  6. ATORVASTATIN [Suspect]
     Active Substance: ATORVASTATIN
     Indication: HYPERCHOLESTEROLAEMIA
     Dosage: 20 MG.?30 1 TAB AT BED-TIME?BY MOUTH
     Route: 048
     Dates: start: 20140819, end: 20140902
  7. MULTIPLE VITAMINS [Concomitant]
     Active Substance: VITAMINS
  8. TOPICAL HYDRCORTISONE [Concomitant]

REACTIONS (2)
  - Neuropathy peripheral [None]
  - Muscle spasms [None]

NARRATIVE: CASE EVENT DATE: 20140819
